FAERS Safety Report 7033778-1 (Version None)
Quarter: 2010Q4

REPORT INFORMATION
  Report Type: 
  Country: None (occurrence: None)
  Receive Date: 20101007
  Receipt Date: 20100927
  Transmission Date: 20110411
  Serious: Yes (Hospitalization, Other)
  Sender: FDA-Public Use
  Company Number: PHHY2010FR64661

PATIENT

DRUGS (8)
  1. NEORAL [Suspect]
     Indication: NEPHROTIC SYNDROME
     Dosage: 200 MG, BID
     Dates: start: 20070201
  2. NEORAL [Suspect]
     Dosage: 250 MG, BID
     Dates: start: 20100201
  3. NEORAL [Suspect]
     Dosage: 50 MG, BID
     Dates: start: 20100601
  4. MABTHERA [Concomitant]
     Dosage: 750 MG/ CYCLE
  5. CORTANCYL [Concomitant]
     Indication: NEPHROTIC SYNDROME
     Dosage: 60 MG, UNK
  6. IRBESARTAN [Concomitant]
     Dosage: 300 MG, UNK
  7. ENALAPRIL MALEATE [Concomitant]
     Dosage: 2 DF, UNK
  8. OROCAL [Concomitant]
     Dosage: 2 DF, UNK

REACTIONS (4)
  - NEPHROPATHY TOXIC [None]
  - PROTEINURIA [None]
  - RENAL INJURY [None]
  - TUBULOINTERSTITIAL NEPHRITIS [None]
